FAERS Safety Report 18514647 (Version 3)
Quarter: 2021Q2

REPORT INFORMATION
  Report Type: Spontaneous
  Country: JP (occurrence: JP)
  Receive Date: 20201118
  Receipt Date: 20210428
  Transmission Date: 20210717
  Serious: Yes (Other)
  Sender: FDA-Public Use
  Company Number: JP-BRISTOL-MYERS SQUIBB COMPANY-BMS-2020-096946

PATIENT

DRUGS (2)
  1. OPDIVO [Suspect]
     Active Substance: NIVOLUMAB
     Indication: MALIGNANT MELANOMA
     Dosage: UNK
     Route: 041
  2. YERVOY [Suspect]
     Active Substance: IPILIMUMAB
     Indication: MALIGNANT MELANOMA
     Dosage: UNK
     Route: 041

REACTIONS (3)
  - Skin disorder [Unknown]
  - Liver disorder [Unknown]
  - Cytomegalovirus enterocolitis [Unknown]
